FAERS Safety Report 24555801 (Version 1)
Quarter: 2024Q4

REPORT INFORMATION
  Report Type: Spontaneous
  Country: IT (occurrence: IT)
  Receive Date: 20241028
  Receipt Date: 20241028
  Transmission Date: 20250114
  Serious: Yes (Death, Life-Threatening, Hospitalization)
  Sender: MYLAN
  Company Number: IT-MYLANLABS-2024M1095583

PATIENT
  Age: 66 Year
  Sex: Female

DRUGS (3)
  1. DEXMEDETOMIDINE [Suspect]
     Active Substance: DEXMEDETOMIDINE
     Indication: Guillain-Barre syndrome
     Dosage: UNK; RECEIVED DEXMEDETOMIDINE 0.8??/KG/HOUR
     Route: 042
  2. DEXMEDETOMIDINE [Suspect]
     Active Substance: DEXMEDETOMIDINE
     Dosage: UNK, QH; RECEIVED DEXMEDETOMIDINE 0.8??/KG/HOUR
     Route: 042
  3. IMMUNE GLOBULIN NOS [Suspect]
     Active Substance: IMMUNE GLOBULIN NOS
     Indication: Guillain-Barre syndrome
     Dosage: UNK; RECEIVED HIGH-DOSE IMMUNE-GLOBULIN 2G/KG OVER 5 DAYS
     Route: 042

REACTIONS (4)
  - Cardiac arrest [Fatal]
  - Drug ineffective for unapproved indication [Unknown]
  - Respiratory failure [Unknown]
  - Off label use [Unknown]
